FAERS Safety Report 17693552 (Version 2)
Quarter: 2020Q2

REPORT INFORMATION
  Report Type: Spontaneous
  Country: US (occurrence: US)
  Receive Date: 20200422
  Receipt Date: 20200423
  Transmission Date: 20200714
  Serious: No
  Sender: FDA-Public Use
  Company Number: US-PFIZER INC-2020156584

PATIENT
  Age: 56 Year
  Sex: Male
  Weight: 113.4 kg

DRUGS (1)
  1. XELJANZ [Suspect]
     Active Substance: TOFACITINIB CITRATE
     Indication: RHEUMATOID ARTHRITIS
     Dosage: 5 MG, 1X/DAY

REACTIONS (5)
  - Bowel movement irregularity [Unknown]
  - Anorectal disorder [Unknown]
  - Hepatic enzyme increased [Unknown]
  - Haemorrhoids [Unknown]
  - Diarrhoea [Unknown]
